FAERS Safety Report 5899010-7 (Version None)
Quarter: 2008Q3

REPORT INFORMATION
  Report Type: 
  Country: None (occurrence: None)
  Receive Date: 20080925
  Receipt Date: 20080915
  Transmission Date: 20090109
  Serious: Yes (Hospitalization, Other)
  Sender: FDA-Public Use
  Company Number: US-PFIZER INC-2008077723

PATIENT
  Sex: Female
  Weight: 53.6 kg

DRUGS (1)
  1. PROCARDIA [Suspect]
     Route: 048

REACTIONS (4)
  - DIALYSIS [None]
  - OVERDOSE [None]
  - PULMONARY OEDEMA [None]
  - RENAL FAILURE CHRONIC [None]
